FAERS Safety Report 5385436-7 (Version None)
Quarter: 2007Q3

REPORT INFORMATION
  Report Type: 
  Country: None (occurrence: None)
  Receive Date: 20070706
  Receipt Date: 20070706
  Transmission Date: 20080115
  Serious: Yes (Hospitalization)
  Sender: FDA-Public Use
  Company Number: None

PATIENT
  Age: 84 Year
  Sex: Male

DRUGS (1)
  1. ENOXAPARIN SODIUM [Suspect]
     Dosage: 80 MG BID IV
     Route: 042
     Dates: start: 20070428, end: 20070502

REACTIONS (3)
  - ANAEMIA [None]
  - HAEMORRHAGE [None]
  - SOFT TISSUE HAEMORRHAGE [None]
